FAERS Safety Report 9379467 (Version 2)
Quarter: 2013Q3

REPORT INFORMATION
  Report Type: Spontaneous
  Country: PL (occurrence: PL)
  Receive Date: 20130702
  Receipt Date: 20130709
  Transmission Date: 20140515
  Serious: Yes (Other)
  Sender: FDA-Public Use
  Company Number: PL-TEVA-416209ISR

PATIENT
  Age: 83 Year
  Sex: Female
  Weight: 90 kg

DRUGS (1)
  1. PACLITAXEL [Suspect]
     Dosage: 300 MG
     Route: 042
     Dates: start: 20130315, end: 20130315

REACTIONS (1)
  - Loss of consciousness [Recovered/Resolved]
